FAERS Safety Report 13771690 (Version 2)
Quarter: 2017Q3

REPORT INFORMATION
  Report Type: Spontaneous
  Country: US (occurrence: US)
  Receive Date: 20170720
  Receipt Date: 20170724
  Transmission Date: 20171127
  Serious: No
  Sender: FDA-Public Use
  Company Number: US-PFIZER INC-2017314334

PATIENT
  Age: 77 Year
  Sex: Female

DRUGS (3)
  1. AMBIEN [Suspect]
     Active Substance: ZOLPIDEM TARTRATE
  2. SONATA [Suspect]
     Active Substance: ZALEPLON
  3. CELEBREX [Concomitant]
     Active Substance: CELECOXIB
     Indication: OSTEOPOROSIS
     Dosage: UNK

REACTIONS (1)
  - Drug ineffective [Unknown]
